FAERS Safety Report 7602557 (Version 4)
Quarter: 2013Q4

REPORT INFORMATION
  Report Type: Spontaneous
  Country: US (occurrence: US)
  Receive Date: 20100923
  Receipt Date: 20131120
  Transmission Date: 20140711
  Serious: Yes (Hospitalization, Other)
  Sender: FDA-Public Use
  Company Number: US-BAYER-201034330NA

PATIENT
  Age: 22 Year
  Sex: Female
  Weight: 72 kg

DRUGS (6)
  1. YAZ [Suspect]
     Indication: ACNE
     Dosage: UNK
     Dates: start: 200708, end: 200909
  2. DUAC [Concomitant]
  3. DIFFERIN [Concomitant]
  4. IMITREX [Concomitant]
     Dosage: 100 MG, UNK
  5. AZITHROMYCIN [Concomitant]
     Dosage: 250 MG, UNK
  6. PROTONIX [Concomitant]

REACTIONS (4)
  - Biliary dyskinesia [None]
  - Biliary colic [Unknown]
  - Pain [Unknown]
  - Mental disorder [None]
